FAERS Safety Report 15813258 (Version 1)
Quarter: 2019Q1

REPORT INFORMATION
  Report Type: Spontaneous
  Country: CN (occurrence: CN)
  Receive Date: 20190111
  Receipt Date: 20190111
  Transmission Date: 20190417
  Serious: Yes (Other)
  Sender: FDA-Public Use
  Company Number: CN-PFIZER INC-2019003025

PATIENT
  Age: 11 Year
  Sex: Female
  Weight: 48 kg

DRUGS (1)
  1. AZITHROMYCIN ANHYDROUS. [Suspect]
     Active Substance: AZITHROMYCIN ANHYDROUS
     Indication: INFECTION
     Dosage: 0.5 G, 1X/DAY
     Route: 041
     Dates: start: 20181028, end: 20181028

REACTIONS (6)
  - Abdominal discomfort [Recovering/Resolving]
  - Heart rate increased [Recovering/Resolving]
  - Gastrointestinal disorder [Recovering/Resolving]
  - Product use issue [Unknown]
  - Nausea [Recovering/Resolving]
  - Cardiac failure [Recovering/Resolving]

NARRATIVE: CASE EVENT DATE: 20181028
